FAERS Safety Report 4761410-6 (Version None)
Quarter: 2005Q3

REPORT INFORMATION
  Report Type: 
  Country: None (occurrence: None)
  Receive Date: 20050901
  Receipt Date: 20050819
  Transmission Date: 20060218
  Serious: Yes (Hospitalization)
  Sender: FDA-Public Use
  Company Number: 2005118864

PATIENT
  Age: 78 Year
  Sex: Male

DRUGS (3)
  1. VFEND [Suspect]
     Indication: BRONCHOPULMONARY ASPERGILLOSIS
     Dosage: 400 MG, ORAL
     Route: 048
     Dates: start: 20050812
  2. HALCION [Suspect]
     Indication: SLEEP DISORDER
     Dosage: 0.25 MG, ORAL
     Route: 048
  3. DEPAS (ETIZOLAM) [Suspect]
     Indication: SLEEP DISORDER
     Dosage: 1 MG, ORAL
     Route: 048

REACTIONS (3)
  - EXTRADURAL HAEMATOMA [None]
  - FALL [None]
  - THORACIC VERTEBRAL FRACTURE [None]
